FAERS Safety Report 11747796 (Version 1)
Quarter: 2015Q4

REPORT INFORMATION
  Report Type: Spontaneous
  Country: US (occurrence: US)
  Receive Date: 20151117
  Receipt Date: 20151117
  Transmission Date: 20160304
  Serious: No
  Sender: FDA-Public Use
  Company Number: US-NOVOPROD-429321

PATIENT
  Age: 77 Year
  Sex: Female

DRUGS (3)
  1. LANTUS [Concomitant]
     Active Substance: INSULIN GLARGINE
     Indication: PRODUCT USED FOR UNKNOWN INDICATION
  2. NOVOLOG MIX 70/30 [Suspect]
     Active Substance: INSULIN ASPART
     Indication: TYPE 2 DIABETES MELLITUS
     Dosage: 140 U, QD
     Route: 058
     Dates: start: 201410
  3. NOVOLOG MIX 70/30 [Suspect]
     Active Substance: INSULIN ASPART
     Dosage: 140 U, QD
     Route: 058
     Dates: start: 201410

REACTIONS (2)
  - Vaginal haemorrhage [Not Recovered/Not Resolved]
  - Blood glucose increased [Not Recovered/Not Resolved]
